FAERS Safety Report 5748563-8 (Version None)
Quarter: 2008Q2

REPORT INFORMATION
  Report Type: 
  Country: None (occurrence: None)
  Receive Date: 20080523
  Receipt Date: 20080515
  Transmission Date: 20081010
  Serious: Yes (Hospitalization, Other)
  Sender: FDA-Public Use
  Company Number: JP-ABBOTT-08P-087-0441429-00

PATIENT
  Sex: Male
  Weight: 50 kg

DRUGS (16)
  1. KLARICID TABLETS [Suspect]
     Indication: PNEUMONIA
     Route: 048
     Dates: start: 20080130, end: 20080307
  2. AMLODIPINE BESYLATE [Suspect]
     Indication: HYPERTENSION
     Route: 048
     Dates: end: 20080305
  3. CARVEDILOL [Suspect]
     Indication: HYPERTENSION
     Route: 048
  4. CARVEDILOL [Suspect]
     Indication: CARDIAC FAILURE
  5. VALSARTAN [Suspect]
     Indication: HYPERTENSION
     Route: 048
     Dates: end: 20080305
  6. VALSARTAN [Suspect]
     Indication: RENAL FAILURE CHRONIC
  7. ISOSORBIDE MONONITRATE [Suspect]
     Indication: DRUG USE FOR UNKNOWN INDICATION
     Route: 048
  8. FUROSEMIDE [Suspect]
     Indication: DRUG USE FOR UNKNOWN INDICATION
     Route: 048
  9. TRICHLORMETHIAZIDE [Suspect]
     Indication: DRUG USE FOR UNKNOWN INDICATION
     Route: 048
     Dates: end: 20080306
  10. CALCIUM ANTAGONIST BLOCKER [Interacting]
     Indication: DRUG USE FOR UNKNOWN INDICATION
  11. ATORVASTATIN CALCIUM HYDRATE [Concomitant]
     Indication: DRUG USE FOR UNKNOWN INDICATION
     Route: 048
     Dates: end: 20080305
  12. ALLOPURINOL [Concomitant]
     Indication: DRUG USE FOR UNKNOWN INDICATION
     Route: 048
  13. REBAMIPIDE [Concomitant]
     Indication: DRUG USE FOR UNKNOWN INDICATION
     Route: 048
  14. FOLIC ACID [Concomitant]
     Indication: DRUG USE FOR UNKNOWN INDICATION
     Route: 048
     Dates: end: 20080319
  15. QUAZEPAM [Concomitant]
     Indication: DRUG USE FOR UNKNOWN INDICATION
     Route: 048
  16. UNSPECIFIED ANTITUMOR DRUGS [Concomitant]
     Indication: GASTROINTESTINAL CARCINOMA
     Route: 048

REACTIONS (17)
  - ANAEMIA [None]
  - ANOREXIA [None]
  - BLOOD CREATININE INCREASED [None]
  - BLOOD PRESSURE DECREASED [None]
  - BLOOD UREA INCREASED [None]
  - CARDIAC FAILURE [None]
  - DECREASED APPETITE [None]
  - DEHYDRATION [None]
  - DRUG INTERACTION [None]
  - GAIT DISTURBANCE [None]
  - GASTROINTESTINAL CARCINOMA [None]
  - MALAISE [None]
  - MALNUTRITION [None]
  - METASTASES TO BONE [None]
  - NUTRITIONAL CONDITION ABNORMAL [None]
  - ORAL INTAKE REDUCED [None]
  - RENAL FAILURE [None]
